FAERS Safety Report 10856463 (Version 3)
Quarter: 2015Q1

REPORT INFORMATION
  Report Type: Report from Study
  Country: US (occurrence: US)
  Receive Date: 20150223
  Receipt Date: 20150226
  Transmission Date: 20150721
  Serious: Yes (Other)
  Sender: FDA-Public Use
  Company Number: US-ABBVIE-15K-163-1348320-00

PATIENT
  Age: 66 Year
  Sex: Female

DRUGS (1)
  1. HUMIRA [Suspect]
     Active Substance: ADALIMUMAB
     Indication: RHEUMATOID ARTHRITIS
     Route: 065
     Dates: start: 20150115

REACTIONS (3)
  - Peripheral swelling [Recovering/Resolving]
  - Carpal tunnel syndrome [Unknown]
  - Bone graft lysis [Unknown]

NARRATIVE: CASE EVENT DATE: 20150210
